FAERS Safety Report 5333067-7 (Version None)
Quarter: 2007Q1

REPORT INFORMATION
  Report Type: 
  Country: None (occurrence: None)
  Receive Date: 20070306
  Receipt Date: 20060911
  Transmission Date: 20070707
  Serious: Yes (Other)
  Sender: FDA-Public Use
  Company Number: A03200605655

PATIENT
  Age: 67 Year
  Sex: Male
  Weight: 88.89 kg

DRUGS (10)
  1. PLAVIX [Suspect]
     Indication: STENT PLACEMENT
     Dosage: 75 MG QD - ORAL
     Route: 048
     Dates: start: 20050901
  2. POTASSIUM ACETATE [Concomitant]
  3. THEOPHYLLINE [Concomitant]
  4. SIMVASTATIN [Concomitant]
  5. CARVEDILOL [Concomitant]
  6. CITALOPRAM HYDROBROMIDE [Concomitant]
  7. VENLAFAXIINE HCL [Concomitant]
  8. CLONAZEPAM [Concomitant]
  9. ACETYLSALICYLIC ACID SRT [Concomitant]
  10. GLYCERYL TRINITRATE [Concomitant]

REACTIONS (4)
  - CORONARY ARTERY OCCLUSION [None]
  - MEMORY IMPAIRMENT [None]
  - RASH ERYTHEMATOUS [None]
  - WEIGHT DECREASED [None]
